FAERS Safety Report 22184792 (Version 2)
Quarter: 2023Q2

REPORT INFORMATION
  Report Type: Report from Study
  Country: JP (occurrence: JP)
  Receive Date: 20230407
  Receipt Date: 20230426
  Transmission Date: 20230722
  Serious: Yes (Hospitalization)
  Sender: FDA-Public Use
  Company Number: JP-CHUGAI-2023011685

PATIENT
  Sex: Male

DRUGS (1)
  1. EMICIZUMAB [Suspect]
     Active Substance: EMICIZUMAB
     Indication: Haemophilia A without inhibitors
     Dosage: UNK
     Route: 058

REACTIONS (1)
  - COVID-19 [Unknown]
